FAERS Safety Report 5605936-1 (Version None)
Quarter: 2008Q1

REPORT INFORMATION
  Report Type: 
  Country: None (occurrence: None)
  Receive Date: 20080123
  Receipt Date: 20080107
  Transmission Date: 20080703
  Serious: Yes (Life-Threatening)
  Sender: FDA-Public Use
  Company Number: 008#8#2008-00006

PATIENT
  Age: 40 Year
  Sex: Female

DRUGS (10)
  1. NITROGLYCERIN [Suspect]
     Indication: ARTERIOSPASM CORONARY
     Dosage: .5 MG, INTRAVENOUS (NOT OTHERWISE SPECIFIED)
     Route: 042
  2. ISOSORBIDE DINITRATE [Suspect]
     Indication: ARTERIOSPASM CORONARY
     Dosage: 3 MG/H; INTRAVENOUS DRIP, 5 MG/H, INTRAVENOUS DRIP
     Route: 041
  3. NICORANDIL (NICORANDIL) [Suspect]
     Indication: ARTERIOSPASM CORONARY
     Dosage: 3 MG/H; INTRAVENOUS DRIP, 5 MG/H; INTRAVENOUS DRIP
     Route: 041
  4. NICORANDIL (NICORANDIL) [Suspect]
     Dosage: INTRACORONARY
     Route: 022
  5. DILTIAZEM [Suspect]
     Indication: ARTERIOSPASM CORONARY
     Dosage: 2000 NG/KG/MIN; INTRAVENOUS DRIP, 5000 NG/KG/MIN; INTRAVENOUS DRIP
     Route: 041
  6. DILTIAZEM [Suspect]
     Dosage: 200 MG (100 MG 2 IN 1 DAY(S); ORAL
     Route: 048
  7. NIFEDIPINE [Suspect]
     Indication: ARTERIOSPASM CORONARY
     Dosage: 20 MG; ORAL
     Route: 048
  8. MIDAZOLAM HCL [Concomitant]
  9. DOPAMINE HCL [Concomitant]
  10. NOREPINEPHRINE BITARTRATE [Concomitant]

REACTIONS (7)
  - ANGINA PECTORIS [None]
  - CORONARY ARTERY OCCLUSION [None]
  - CORONARY ARTERY STENOSIS [None]
  - DRUG INEFFECTIVE [None]
  - ELECTROCARDIOGRAM ST SEGMENT ELEVATION [None]
  - LOSS OF CONSCIOUSNESS [None]
  - VENTRICULAR TACHYCARDIA [None]
